FAERS Safety Report 6519875-5 (Version None)
Quarter: 2009Q4

REPORT INFORMATION
  Report Type: 
  Country: None (occurrence: None)
  Receive Date: 20091228
  Receipt Date: 20091228
  Transmission Date: 20100525
  Serious: No
  Sender: FDA-Public Use
  Company Number: None

PATIENT

DRUGS (2)
  1. CLONIDINE HYDROCHLORIDE [Suspect]
  2. LOPERAMIDE HYDROCHLORIDE [Suspect]

REACTIONS (2)
  - DRUG LABEL CONFUSION [None]
  - INTERCEPTED MEDICATION ERROR [None]
